FAERS Safety Report 14815886 (Version 1)
Quarter: 2018Q2

REPORT INFORMATION
  Report Type: Spontaneous
  Country: US (occurrence: US)
  Receive Date: 20180426
  Receipt Date: 20180426
  Transmission Date: 20180711
  Serious: No
  Sender: FDA-Public Use
  Company Number: US-GLAXOSMITHKLINE-US2018068559

PATIENT
  Age: 22 Year
  Sex: Female
  Weight: 107 kg

DRUGS (1)
  1. EQUATE NICOTINE [Suspect]
     Active Substance: NICOTINE
     Indication: SMOKING CESSATION THERAPY
     Dosage: 21 MG, ONCE, JUST PURCHASED IT.

REACTIONS (3)
  - Application site discolouration [Unknown]
  - Application site pruritus [Unknown]
  - Application site erythema [Unknown]
